FAERS Safety Report 17259976 (Version 2)
Quarter: 2020Q1

REPORT INFORMATION
  Report Type: Spontaneous
  Country: GB (occurrence: GB)
  Receive Date: 20200111
  Receipt Date: 20200225
  Transmission Date: 20200409
  Serious: Yes (Death, Hospitalization)
  Sender: FDA-Public Use
  Company Number: GB-ROCHE-2517995

PATIENT
  Age: 87 Year
  Sex: Female

DRUGS (3)
  1. PIRFENIDONE. [Suspect]
     Active Substance: PIRFENIDONE
     Indication: IDIOPATHIC PULMONARY FIBROSIS
     Dosage: 267MG TDS 7 DAYS THEN INCREASE TO 534MG TDS FOR 7 DAYS
     Route: 048
     Dates: start: 20191212
  2. CLOPIDOGREL [Concomitant]
     Active Substance: CLOPIDOGREL BISULFATE
     Dosage: (X13)
     Route: 065
  3. LANSOPRAZOLE. [Concomitant]
     Active Substance: LANSOPRAZOLE
     Dosage: (X8)
     Route: 065

REACTIONS (3)
  - Pneumonia [Fatal]
  - Cerebrovascular accident [Fatal]
  - Malaise [Fatal]

NARRATIVE: CASE EVENT DATE: 20191220
